FAERS Safety Report 6716652-7 (Version None)
Quarter: 2010Q2

REPORT INFORMATION
  Report Type: 
  Country: None (occurrence: None)
  Receive Date: 20100509
  Receipt Date: 20100428
  Transmission Date: 20101027
  Serious: Yes (Other)
  Sender: FDA-Public Use
  Company Number: US-BRISTOL-MYERS SQUIBB COMPANY-15083454

PATIENT
  Sex: Female

DRUGS (1)
  1. ONGLYZA [Suspect]
     Dates: start: 20100412

REACTIONS (1)
  - HALLUCINATION [None]
